FAERS Safety Report 10163111 (Version 1)
Quarter: 2014Q2

REPORT INFORMATION
  Report Type: Spontaneous
  Country: US (occurrence: US)
  Receive Date: 20140509
  Receipt Date: 20140509
  Transmission Date: 20141212
  Serious: Yes (Hospitalization)
  Sender: FDA-Public Use
  Company Number: US-GLAXOSMITHKLINE-A1071403A

PATIENT
  Age: 72 Year
  Sex: Female

DRUGS (11)
  1. ADVAIR [Suspect]
     Indication: CHRONIC OBSTRUCTIVE PULMONARY DISEASE
     Dosage: 1PUFF TWICE PER DAY
     Route: 055
  2. PREDNISONE [Suspect]
     Indication: LUNG DISORDER
     Route: 065
  3. OXYGEN THERAPY [Suspect]
     Indication: PRODUCT USED FOR UNKNOWN INDICATION
     Route: 065
  4. SPIRIVA [Concomitant]
  5. LEVOTHYROXINE [Concomitant]
  6. HCTZ [Concomitant]
  7. ATENOLOL [Concomitant]
  8. METFORMIN [Concomitant]
  9. ATORVASTATIN [Concomitant]
  10. CALCIUM + VITAMIN D3 [Concomitant]
  11. MULTIVITAMIN [Concomitant]

REACTIONS (8)
  - Lung neoplasm malignant [Unknown]
  - Lung lobectomy [Unknown]
  - Diabetes mellitus [Unknown]
  - Lung disorder [Unknown]
  - Blood glucose increased [Unknown]
  - Headache [Not Recovered/Not Resolved]
  - Dizziness [Not Recovered/Not Resolved]
  - Dyspnoea [Not Recovered/Not Resolved]
